FAERS Safety Report 7273804-8 (Version None)
Quarter: 2011Q1

REPORT INFORMATION
  Report Type: 
  Country: None (occurrence: None)
  Receive Date: 20110203
  Receipt Date: 20110124
  Transmission Date: 20110831
  Serious: Yes (Hospitalization)
  Sender: FDA-Public Use
  Company Number: NL-MEDIMMUNE-MEDI-0012349

PATIENT
  Sex: Male
  Weight: 4.61 kg

DRUGS (6)
  1. FOLIC ACID [Concomitant]
  2. SYNAGIS [Suspect]
     Route: 030
     Dates: start: 20101006, end: 20101227
  3. ERGOCALCIFEROL [Concomitant]
  4. FERROUS FUMARATE [Concomitant]
  5. SYNAGIS [Suspect]
     Route: 030
     Dates: start: 20110120, end: 20110120
  6. METOPROLOL SUCCINATE [Concomitant]

REACTIONS (2)
  - RESPIRATORY TRACT INFECTION [None]
  - INCREASED UPPER AIRWAY SECRETION [None]
